FAERS Safety Report 8066335-9 (Version None)
Quarter: 2012Q1

REPORT INFORMATION
  Report Type: 
  Country: None (occurrence: None)
  Receive Date: 20120124
  Receipt Date: 20120112
  Transmission Date: 20120608
  Serious: Yes (Hospitalization)
  Sender: FDA-Public Use
  Company Number: CA-ELI_LILLY_AND_COMPANY-CA201201004395

PATIENT
  Age: 73 Year
  Sex: Female

DRUGS (6)
  1. MAGNESIUM HYDROXIDE TAB [Concomitant]
     Dosage: UNK
  2. CALCIUM [Concomitant]
     Dosage: UNK
  3. VITAMIN D [Concomitant]
     Dosage: UNK
  4. FORTEO [Suspect]
     Indication: OSTEOPOROSIS
     Dosage: 20 UG, QD
     Route: 058
     Dates: start: 20111128
  5. ASPIRIN [Concomitant]
     Dosage: UNK
  6. MAGNESIUM SULFATE [Concomitant]
     Dosage: UNK

REACTIONS (3)
  - ASTHENIA [None]
  - HYPOMAGNESAEMIA [None]
  - DIZZINESS [None]
